FAERS Safety Report 10760391 (Version 2)
Quarter: 2015Q1

REPORT INFORMATION
  Report Type: Spontaneous
  Country: CH (occurrence: CH)
  Receive Date: 20150204
  Receipt Date: 20150212
  Transmission Date: 20150721
  Serious: Yes (Other)
  Sender: FDA-Public Use
  Company Number: CH-ASTRAZENECA-2015SE08684

PATIENT
  Age: 72 Year
  Sex: Male

DRUGS (8)
  1. DAFALGAN [Suspect]
     Active Substance: ACETAMINOPHEN
     Route: 048
     Dates: start: 20141101, end: 20141107
  2. ENALAPRIL [Suspect]
     Active Substance: ENALAPRIL
     Indication: HYPERTENSION
     Route: 048
     Dates: start: 20141101
  3. NEXIUM [Suspect]
     Active Substance: ESOMEPRAZOLE MAGNESIUM
     Route: 048
     Dates: start: 20141101, end: 20141107
  4. NEXIUM [Suspect]
     Active Substance: ESOMEPRAZOLE MAGNESIUM
     Route: 048
     Dates: start: 20141130
  5. BELOC ZOK [Concomitant]
     Active Substance: METOPROLOL SUCCINATE
     Route: 048
     Dates: start: 20141101
  6. AMLODIPINE [Concomitant]
     Active Substance: AMLODIPINE BESYLATE
     Dates: start: 20141103, end: 20141103
  7. ENALAPRIL [Suspect]
     Active Substance: ENALAPRIL
     Indication: HYPERTENSION
     Route: 048
     Dates: start: 20141101, end: 20141107
  8. TOREM [Concomitant]
     Active Substance: TORSEMIDE

REACTIONS (2)
  - Drug-induced liver injury [Unknown]
  - Cholestatic liver injury [Recovering/Resolving]

NARRATIVE: CASE EVENT DATE: 20141106
